FAERS Safety Report 8529497-2 (Version None)
Quarter: 2012Q3

REPORT INFORMATION
  Report Type: 
  Country: None (occurrence: None)
  Receive Date: 20120723
  Receipt Date: 20120713
  Transmission Date: 20120928
  Serious: Yes (Other)
  Sender: FDA-Public Use
  Company Number: US-US-EMD SERONO, INC.-7147839

PATIENT
  Sex: Female
  Weight: 140 kg

DRUGS (2)
  1. ALEVE [Concomitant]
     Indication: PREMEDICATION
  2. REBIF [Suspect]
     Indication: MULTIPLE SCLEROSIS
     Route: 058
     Dates: start: 20070410

REACTIONS (9)
  - GAIT DISTURBANCE [None]
  - MALAISE [None]
  - INJECTION SITE HAEMATOMA [None]
  - DIABETES MELLITUS [None]
  - VIRAL INFECTION [None]
  - LIMB DISCOMFORT [None]
  - INJECTION SITE SCAR [None]
  - INJECTION SITE ERYTHEMA [None]
  - INJECTION SITE MASS [None]
